FAERS Safety Report 9476822 (Version 2)
Quarter: 2013Q3

REPORT INFORMATION
  Report Type: Report from Study
  Country: US (occurrence: US)
  Receive Date: 20130826
  Receipt Date: 20130905
  Transmission Date: 20140515
  Serious: Yes (Hospitalization)
  Sender: FDA-Public Use
  Company Number: US-ROCHE-1264205

PATIENT
  Age: 81 Year
  Sex: Female
  Weight: 59.02 kg

DRUGS (5)
  1. ZELBORAF [Suspect]
     Indication: METASTATIC MALIGNANT MELANOMA
     Route: 048
     Dates: start: 20130201, end: 20130301
  2. ZELBORAF [Suspect]
     Route: 048
     Dates: start: 20130301, end: 20130601
  3. ZELBORAF [Suspect]
     Route: 048
     Dates: start: 20130601
  4. ZELBORAF [Suspect]
     Route: 048
  5. PROCRIT [Concomitant]
     Indication: RED BLOOD CELL COUNT DECREASED
     Route: 058
     Dates: start: 20130802

REACTIONS (10)
  - Decreased appetite [Recovered/Resolved]
  - Dizziness [Recovered/Resolved]
  - Dehydration [Recovered/Resolved]
  - Squamous cell carcinoma of skin [Recovering/Resolving]
  - Red blood cell count decreased [Not Recovered/Not Resolved]
  - Amnesia [Not Recovered/Not Resolved]
  - Alopecia [Not Recovered/Not Resolved]
  - Pallor [Not Recovered/Not Resolved]
  - Depression [Not Recovered/Not Resolved]
  - Fatigue [Not Recovered/Not Resolved]
